FAERS Safety Report 7757700-5 (Version None)
Quarter: 2011Q3

REPORT INFORMATION
  Report Type: 
  Country: None (occurrence: None)
  Receive Date: 20110916
  Receipt Date: 20110914
  Transmission Date: 20111222
  Serious: Yes (Hospitalization)
  Sender: FDA-Public Use
  Company Number: US-MERCK-1106USA04016

PATIENT
  Age: 63 Year
  Sex: Female

DRUGS (7)
  1. FOSAMAX [Suspect]
     Indication: OSTEOPOROSIS
     Route: 048
     Dates: start: 20020610, end: 20040302
  2. FOSAMAX PLUS D [Suspect]
     Indication: OSTEOPOROSIS
     Route: 048
     Dates: start: 20050808, end: 20080620
  3. FOSAMAX [Suspect]
     Route: 048
  4. CALCIUM (UNSPECIFIED) [Concomitant]
     Route: 065
     Dates: start: 20070101
  5. FOSAMAX [Suspect]
     Route: 048
     Dates: start: 20080616, end: 20101213
  6. OMEGA-3 MARINE TRIGLYCERIDES [Concomitant]
     Route: 065
     Dates: start: 20070101
  7. VITAMIN D (UNSPECIFIED) [Concomitant]
     Route: 065
     Dates: start: 20070101

REACTIONS (4)
  - GASTROINTESTINAL DISORDER [None]
  - FALL [None]
  - FEMUR FRACTURE [None]
  - SPINAL CORD DISORDER [None]
